FAERS Safety Report 8796757 (Version 2)
Quarter: 2012Q4

REPORT INFORMATION
  Report Type: 
  Country: US (occurrence: US)
  Receive Date: 20120917
  Receipt Date: 20121010
  Transmission Date: 20130627
  Serious: No
  Sender: FDA-Public Use
  Company Number: US-ASTRAZENECA-2012SE60948

PATIENT
  Age: 74 Year
  Sex: Female
  Weight: 54.4 kg

DRUGS (3)
  1. SYMBICORT PMDI [Suspect]
     Indication: CHRONIC OBSTRUCTIVE PULMONARY DISEASE
     Dosage: 160/4.5 MCG TWO PUFFS TWO TIMES A DAY
     Route: 055
     Dates: start: 20120702
  2. CALCIUM [Concomitant]
  3. MULTIVITAMIN [Concomitant]

REACTIONS (2)
  - Dyspnoea [Unknown]
  - Circumstance or information capable of leading to medication error [Unknown]
